FAERS Safety Report 20417313 (Version 1)
Quarter: 2022Q1

REPORT INFORMATION
  Report Type: Spontaneous
  Country: US (occurrence: None)
  Receive Date: 20220202
  Receipt Date: 20220202
  Transmission Date: 20220424
  Serious: No
  Sender: FDA-Public Use
  Company Number: None

PATIENT
  Age: 70 Year
  Sex: Female

DRUGS (3)
  1. JUXTAPID [Suspect]
     Active Substance: LOMITAPIDE MESYLATE
     Indication: Type IIa hyperlipidaemia
     Dosage: FREQUENCY : AT BEDTIME;?
     Route: 048
  2. Super Omega 3 [Concomitant]
  3. Vitamin E 400 IU [Concomitant]

REACTIONS (2)
  - Product use issue [None]
  - Intentional dose omission [None]

NARRATIVE: CASE EVENT DATE: 20220201
